FAERS Safety Report 9056339 (Version 2)
Quarter: 2013Q2

REPORT INFORMATION
  Report Type: Report from Study
  Country: BE (occurrence: BE)
  Receive Date: 20130204
  Receipt Date: 20130513
  Transmission Date: 20140414
  Serious: Yes (Hospitalization, Other)
  Sender: FDA-Public Use
  Company Number: BE-ROCHE-1185101

PATIENT
  Age: 53 Year
  Sex: Female
  Weight: 48 kg

DRUGS (14)
  1. TRASTUZUMAB EMTANSINE [Suspect]
     Indication: HER-2 POSITIVE BREAST CANCER
     Route: 065
     Dates: start: 20130320, end: 20130320
  2. TRASTUZUMAB [Suspect]
     Indication: BREAST CANCER METASTATIC
     Route: 065
     Dates: start: 201111
  3. TRASTUZUMAB [Suspect]
     Route: 065
     Dates: start: 201202
  4. CAPECITABINE [Suspect]
     Indication: BREAST CANCER METASTATIC
     Route: 065
     Dates: start: 201202
  5. DOCETAXEL [Suspect]
     Indication: PRODUCT USED FOR UNKNOWN INDICATION
     Route: 065
     Dates: start: 201212
  6. DOCETAXEL [Suspect]
     Route: 065
  7. PACLITAXEL [Suspect]
     Indication: HER-2 POSITIVE BREAST CANCER
     Route: 065
  8. PACLITAXEL [Suspect]
     Route: 065
     Dates: start: 201301
  9. DOXORUBICIN [Suspect]
     Indication: HER-2 POSITIVE BREAST CANCER
     Route: 065
     Dates: start: 201209, end: 201301
  10. LAPATINIB [Suspect]
     Indication: HER-2 POSITIVE BREAST CANCER
     Route: 065
     Dates: start: 201209
  11. LAPATINIB [Suspect]
     Route: 065
     Dates: start: 201212
  12. LAPATINIB [Suspect]
     Route: 065
     Dates: end: 201301
  13. FULVESTRANT [Concomitant]
  14. CISPLATIN [Concomitant]
     Route: 065

REACTIONS (6)
  - Hepatic failure [Unknown]
  - Metastases to liver [Unknown]
  - Metastases to bone [Unknown]
  - Neutropenia [Unknown]
  - Eye disorder [Unknown]
  - Disease progression [Not Recovered/Not Resolved]
